FAERS Safety Report 15795718 (Version 1)
Quarter: 2019Q1

REPORT INFORMATION
  Report Type: Report from Study
  Country: TR (occurrence: TR)
  Receive Date: 20190107
  Receipt Date: 20190107
  Transmission Date: 20190417
  Serious: Yes (Other)
  Sender: FDA-Public Use
  Company Number: TR-MYLANLABS-2018M1097534

PATIENT
  Age: 34 Year
  Sex: Female

DRUGS (1)
  1. DESOGESTREL/ETHINYLESTRADIOL/ETHINYL ESTRADIOL [Suspect]
     Active Substance: DESOGESTREL\ETHINYL ESTRADIOL
     Indication: CONTRACEPTION
     Dosage: ADMINISTERED DURING GESTATIONAL WEEK 4-7
     Route: 048

REACTIONS (3)
  - Maternal exposure during pregnancy [Recovered/Resolved]
  - Contraindicated product administered [Unknown]
  - Abortion spontaneous [Recovered/Resolved]
